FAERS Safety Report 9210811 (Version 1)
Quarter: 2013Q2

REPORT INFORMATION
  Report Type: Spontaneous
  Country: US (occurrence: US)
  Receive Date: 20130404
  Receipt Date: 20130404
  Transmission Date: 20140414
  Serious: Yes (Hospitalization, Other)
  Sender: FDA-Public Use
  Company Number: PHHY2013US031466

PATIENT
  Age: 45 Year
  Sex: Female

DRUGS (7)
  1. ACETYLSALICYLIC ACID [Suspect]
     Indication: ALLERGIC RESPIRATORY DISEASE
     Dosage: 20 MG, UNK
  2. ACETYLSALICYLIC ACID [Suspect]
     Dosage: 40 MG, UNK
  3. IBUPROFEN [Suspect]
     Indication: BACK PAIN
  4. SALMETEROL/FLUTICASONPROPIONAAT [Concomitant]
     Route: 055
  5. MONTELUKAST [Concomitant]
  6. FLUTICASONE [Concomitant]
  7. ALBUTEROL-HYDROFLUOROALKANE [Concomitant]

REACTIONS (10)
  - Pancreatitis [Unknown]
  - Abdominal pain upper [Unknown]
  - Bronchospasm [Unknown]
  - Decreased appetite [Unknown]
  - Urticaria [Unknown]
  - Chest discomfort [Recovered/Resolved]
  - Wheezing [Recovered/Resolved]
  - Dyspnoea [Recovered/Resolved]
  - Nasal congestion [Recovered/Resolved]
  - Rhinorrhoea [Recovered/Resolved]
